FAERS Safety Report 5866284-8 (Version None)
Quarter: 2008Q3

REPORT INFORMATION
  Report Type: 
  Country: None (occurrence: None)
  Receive Date: 20080901
  Receipt Date: 20080819
  Transmission Date: 20090109
  Serious: Yes (Hospitalization)
  Sender: FDA-Public Use
  Company Number: FR-RANBAXY-2008RR-16228

PATIENT

DRUGS (3)
  1. METFORMINE RANBAXY 850MG COMPRIME PELLICULE [Suspect]
     Indication: HYPERGLYCAEMIA
     Dosage: 850 MG, BID
     Dates: start: 20040101
  2. FLUDARABINE [Concomitant]
     Indication: SPLENIC MARGINAL ZONE LYMPHOMA
     Dosage: 25 MG/M2, QD
     Route: 042
     Dates: start: 20070101
  3. FLUDARABINE [Concomitant]
     Dosage: 40 MG/M2, QD
     Route: 048

REACTIONS (1)
  - AUTOIMMUNE NEUTROPENIA [None]
